FAERS Safety Report 10273208 (Version 3)
Quarter: 2014Q3

REPORT INFORMATION
  Report Type: Spontaneous
  Country: US (occurrence: None)
  Receive Date: 20140630
  Receipt Date: 20140714
  Transmission Date: 20150326
  Serious: Yes (Hospitalization)
  Sender: FDA-Public Use
  Company Number: UNT-2014-002639

PATIENT
  Age: 48 Year
  Sex: Male
  Weight: 131 kg

DRUGS (3)
  1. XARELTO [Concomitant]
     Active Substance: RIVAROXABAN
  2. ADCIRCA [Concomitant]
     Active Substance: TADALAFIL
  3. TYVASO [Suspect]
     Active Substance: TREPROSTINIL
     Indication: COR PULMONALE CHRONIC
     Route: 055
     Dates: start: 20140506

REACTIONS (5)
  - Endarterectomy [None]
  - Surgery [None]
  - Thoracoplasty [None]
  - Pulmonary hypertension [None]
  - Mechanical ventilation [None]

NARRATIVE: CASE EVENT DATE: 20140613
